FAERS Safety Report 14277351 (Version 1)
Quarter: 2017Q4

REPORT INFORMATION
  Report Type: Other
  Country: GB (occurrence: GB)
  Receive Date: 20171212
  Receipt Date: 20171212
  Transmission Date: 20180321
  Serious: Yes (Other)
  Sender: FDA-Public Use
  Company Number: GB-BIO PRODUCTS LABORATORY LTD-2037030

PATIENT
  Age: 54 Year

DRUGS (5)
  1. MYCOPHENOLATE MOFETIL. [Suspect]
     Active Substance: MYCOPHENOLATE MOFETIL
  2. GENERIC IVIG [Suspect]
     Active Substance: HUMAN IMMUNOGLOBULIN G
     Indication: IMMUNE THROMBOCYTOPENIC PURPURA
  3. ELTROMBOPAG [Suspect]
     Active Substance: ELTROMBOPAG
  4. RITUXIMAB, [Suspect]
     Active Substance: RITUXIMAB
  5. PREDNISOLONE. [Suspect]
     Active Substance: PREDNISOLONE

REACTIONS (4)
  - Petechiae [Recovered/Resolved]
  - Headache [Recovered/Resolved]
  - Blister [Recovered/Resolved]
  - Contusion [Recovered/Resolved]
